FAERS Safety Report 12383656 (Version 2)
Quarter: 2016Q2

REPORT INFORMATION
  Report Type: Report from Study
  Country: DE (occurrence: DE)
  Receive Date: 20160519
  Receipt Date: 20160527
  Transmission Date: 20160815
  Serious: Yes (Other)
  Sender: FDA-Public Use
  Company Number: DE-ROCHE-1611753

PATIENT
  Age: 67 Year
  Sex: Female
  Weight: 82 kg

DRUGS (1)
  1. ESBRIET [Suspect]
     Active Substance: PIRFENIDONE
     Indication: IDIOPATHIC PULMONARY FIBROSIS
     Dosage: 3 CAPSULES THREE TIMES A DAY
     Route: 048
     Dates: start: 20130401, end: 20160512

REACTIONS (17)
  - Gastrooesophageal reflux disease [Recovering/Resolving]
  - Rash pustular [Unknown]
  - Dyspepsia [Not Recovered/Not Resolved]
  - Facial pain [Unknown]
  - Cough [Not Recovered/Not Resolved]
  - Cough [Unknown]
  - Dyspnoea [Not Recovered/Not Resolved]
  - Erythema [Unknown]
  - Headache [Unknown]
  - Fatigue [Unknown]
  - Drug hypersensitivity [Unknown]
  - Pruritus [Unknown]
  - Dyspepsia [Unknown]
  - Sunburn [Recovered/Resolved]
  - Dysphonia [Not Recovered/Not Resolved]
  - Aphonia [Unknown]
  - Photosensitivity reaction [Unknown]

NARRATIVE: CASE EVENT DATE: 201512
